FAERS Safety Report 5130229-9 (Version None)
Quarter: 2006Q4

REPORT INFORMATION
  Report Type: 
  Country: None (occurrence: None)
  Receive Date: 20061013
  Receipt Date: 20060928
  Transmission Date: 20070319
  Serious: Yes (Hospitalization)
  Sender: FDA-Public Use
  Company Number: REM_00259_2006

PATIENT
  Age: 42 Year
  Sex: Female

DRUGS (10)
  1. REMODULIN [Suspect]
     Indication: PULMONARY HYPERTENSION
     Dosage: 95 NG/KG/MIN CONTINUOUS IV
     Route: 042
     Dates: start: 20040701
  2. TRACLEER [Concomitant]
  3. DIGOXIN [Concomitant]
  4. DEMADEX [Concomitant]
  5. COUMADIN [Concomitant]
  6. NITROGLYCERIN [Concomitant]
  7. K-DUR 10 [Concomitant]
  8. TRIZIVIR [Concomitant]
  9. ULTRACET [Concomitant]
  10. TYLENOL [Concomitant]

REACTIONS (11)
  - ACINETOBACTER INFECTION [None]
  - BLOOD CULTURE POSITIVE [None]
  - CATHETER RELATED COMPLICATION [None]
  - CATHETER SITE DISCHARGE [None]
  - CENTRAL LINE INFECTION [None]
  - CULTURE WOUND POSITIVE [None]
  - KLEBSIELLA INFECTION [None]
  - PSEUDOMONAS INFECTION [None]
  - PURULENT DISCHARGE [None]
  - SERRATIA INFECTION [None]
  - STAPHYLOCOCCAL INFECTION [None]
